FAERS Safety Report 25935856 (Version 1)
Quarter: 2025Q4

REPORT INFORMATION
  Report Type: Spontaneous
  Country: EU (occurrence: EU)
  Receive Date: 20251017
  Receipt Date: 20251017
  Transmission Date: 20260118
  Serious: Yes (Other)
  Sender: NOVO NORDISK
  Company Number: EU-NOVOPROD-1538668

PATIENT
  Age: 905 Month
  Sex: Female

DRUGS (5)
  1. OZEMPIC [Suspect]
     Active Substance: SEMAGLUTIDE
     Indication: Product used for unknown indication
     Dosage: UNK
  2. METFORMIN [Concomitant]
     Active Substance: METFORMIN HYDROCHLORIDE
     Indication: Product used for unknown indication
     Dosage: UNK
  3. GLICLAZIDE [Concomitant]
     Active Substance: GLICLAZIDE
     Indication: Product used for unknown indication
     Dosage: UNK
  4. ASPIRIN [Concomitant]
     Active Substance: ASPIRIN
     Indication: Product used for unknown indication
     Dosage: UNK
  5. UTROGESTAN [Concomitant]
     Active Substance: PROGESTERONE
     Indication: Product used for unknown indication
     Dosage: UNK

REACTIONS (7)
  - Transaminases increased [Unknown]
  - Blood alkaline phosphatase increased [Unknown]
  - Chromaturia [Unknown]
  - Yellow skin [Unknown]
  - Drug-induced liver injury [Unknown]
  - Fatigue [Unknown]
  - Drug intolerance [Unknown]
